FAERS Safety Report 24689299 (Version 2)
Quarter: 2025Q1

REPORT INFORMATION
  Report Type: Report from Study
  Country: AU (occurrence: AU)
  Receive Date: 20241203
  Receipt Date: 20250128
  Transmission Date: 20250409
  Serious: Yes (Death, Hospitalization)
  Sender: AMGEN
  Company Number: AU-AMGEN-AUSNI2024236666

PATIENT
  Age: 65 Year
  Sex: Male

DRUGS (13)
  1. TARLATAMAB [Suspect]
     Active Substance: TARLATAMAB
     Indication: Small cell lung cancer
     Route: 065
     Dates: start: 20241120, end: 20241120
  2. TOCILIZUMAB [Concomitant]
     Active Substance: TOCILIZUMAB
  3. ACETAMINOPHEN [Concomitant]
     Active Substance: ACETAMINOPHEN
  4. FUROSEMIDE [Concomitant]
     Active Substance: FUROSEMIDE
     Dosage: 40 MILLIGRAM, BID
  5. DEXAMETHASONE [Concomitant]
     Active Substance: DEXAMETHASONE
  6. DEXTROSE [Concomitant]
     Active Substance: DEXTROSE MONOHYDRATE
  7. NOVORAPID [Concomitant]
     Active Substance: INSULIN ASPART
  8. VANCOMYCIN [Concomitant]
     Active Substance: VANCOMYCIN
     Indication: Staphylococcal bacteraemia
     Dates: start: 20241124
  9. FLUCLOXACILLIN [Concomitant]
     Active Substance: FLUCLOXACILLIN
     Indication: Staphylococcal bacteraemia
     Dates: start: 20241124
  10. HYDROMORPHONE [Concomitant]
     Active Substance: HYDROMORPHONE
  11. MIDAZOLAM [Concomitant]
     Active Substance: MIDAZOLAM
  12. SCOPOLAMINE [Concomitant]
     Active Substance: SCOPOLAMINE
  13. HALOPERIDOL [Concomitant]
     Active Substance: HALOPERIDOL

REACTIONS (1)
  - Death [Fatal]

NARRATIVE: CASE EVENT DATE: 20241126
